FAERS Safety Report 16828626 (Version 1)
Quarter: 2019Q3

REPORT INFORMATION
  Report Type: Spontaneous
  Country: US (occurrence: US)
  Receive Date: 20190919
  Receipt Date: 20190919
  Transmission Date: 20191005
  Serious: No
  Sender: FDA-Public Use
  Company Number: US-PFIZER INC-2019401182

PATIENT
  Sex: Female

DRUGS (1)
  1. HYDROCORTISONE. [Suspect]
     Active Substance: HYDROCORTISONE
     Dosage: 10 MG, UNK

REACTIONS (2)
  - Dysgeusia [Unknown]
  - Wrong technique in product usage process [Unknown]
